FAERS Safety Report 6581233-5 (Version None)
Quarter: 2010Q1

REPORT INFORMATION
  Report Type: 
  Country: None (occurrence: None)
  Receive Date: 20100203
  Receipt Date: 20100119
  Transmission Date: 20100710
  Serious: Yes (Other)
  Sender: FDA-Public Use
  Company Number: 2010S1000358

PATIENT
  Sex: Male

DRUGS (9)
  1. PHOSPHOSODA FLAVOR NOT SPECIFIED [Suspect]
     Indication: COLONOSCOPY
     Dosage: PO
     Route: 048
     Dates: start: 20050101
  2. LOPID [Concomitant]
  3. CLONIDINE [Concomitant]
  4. K-DUR [Concomitant]
  5. POTASSIUM [Concomitant]
  6. FUROSEMIDE [Concomitant]
  7. PROCARDIA [Concomitant]
  8. VASOTEC [Concomitant]
  9. ZOCOR [Concomitant]

REACTIONS (4)
  - BLOOD CREATININE INCREASED [None]
  - GLOMERULAR FILTRATION RATE DECREASED [None]
  - HYPERPARATHYROIDISM [None]
  - RENAL DISORDER [None]
